FAERS Safety Report 18315063 (Version 8)
Quarter: 2022Q1

REPORT INFORMATION
  Report Type: Spontaneous
  Country: IT (occurrence: IT)
  Receive Date: 20200926
  Receipt Date: 20220325
  Transmission Date: 20220423
  Serious: Yes (Death, Other)
  Sender: FDA-Public Use
  Company Number: IT-CELLTRION INC.-2020IT027843

PATIENT

DRUGS (19)
  1. TRASTUZUMAB [Suspect]
     Active Substance: TRASTUZUMAB
     Indication: Salivary gland cancer
     Dosage: 2 MILLIGRAM/KILOGRAM, EVERY WEEK; FREQUENCY 6 CYCLES
     Route: 065
  2. TRASTUZUMAB [Suspect]
     Active Substance: TRASTUZUMAB
     Indication: Metastases to lung
     Dosage: LOADING DOSE 4 MG/KG, WEEKLY; FREQUENCY 6 CYCLES
     Route: 065
  3. TRASTUZUMAB [Suspect]
     Active Substance: TRASTUZUMAB
     Indication: Metastases to lymph nodes
     Dosage: 6 MILLIGRAM/KILOGRAM, 3-WEEKLY FOR 10 MONTHS
     Route: 065
  4. TRASTUZUMAB [Suspect]
     Active Substance: TRASTUZUMAB
     Indication: Disease progression
     Dosage: LOADING DOSE OF 4 MILLIGRAM/KILOGRAM, THEN 2 MILLIGRAM/KILOGRAM, FOR SIX CYCLES, SECOND LINE
     Route: 065
  5. TRASTUZUMAB [Suspect]
     Active Substance: TRASTUZUMAB
     Indication: Metastases to liver
  6. CARBOPLATIN [Suspect]
     Active Substance: CARBOPLATIN
     Indication: Salivary gland cancer
     Dosage: AUC2 WEEKLY FOR SIX CYCLES
     Route: 065
  7. CARBOPLATIN [Suspect]
     Active Substance: CARBOPLATIN
     Indication: Disease progression
     Dosage: UNK UNK, QWK
     Route: 065
  8. CARBOPLATIN [Suspect]
     Active Substance: CARBOPLATIN
     Indication: Metastases to liver
     Dosage: FREQUENCY: 6 CYCLES
  9. CARBOPLATIN [Suspect]
     Active Substance: CARBOPLATIN
     Indication: Metastases to lung
     Dosage: SIX CYCLES, SECOND LINE
     Route: 065
  10. CARBOPLATIN [Suspect]
     Active Substance: CARBOPLATIN
     Indication: Metastases to lymph nodes
  11. PACLITAXEL [Suspect]
     Active Substance: PACLITAXEL
     Indication: Salivary gland cancer
     Dosage: 80 MILLIGRAM/SQ. METER, QWK/ FREQUENCY 6 CYCLES
     Route: 065
  12. PACLITAXEL [Suspect]
     Active Substance: PACLITAXEL
     Indication: Metastases to liver
     Dosage: 80 MILLIGRAM PER SQUARE METRE, SIX CYCLES, SECOND LINE
     Route: 065
  13. PACLITAXEL [Suspect]
     Active Substance: PACLITAXEL
     Indication: Metastases to lung
  14. PACLITAXEL [Suspect]
     Active Substance: PACLITAXEL
     Indication: Disease progression
  15. PACLITAXEL [Suspect]
     Active Substance: PACLITAXEL
     Indication: Metastases to lymph nodes
  16. LEUPROLIDE ACETATE [Concomitant]
     Active Substance: LEUPROLIDE ACETATE
     Indication: Salivary gland cancer
  17. LEUPROLIDE ACETATE [Concomitant]
     Active Substance: LEUPROLIDE ACETATE
     Indication: Metastases to lymph nodes
  18. LEUPROLIDE ACETATE [Concomitant]
     Active Substance: LEUPROLIDE ACETATE
     Indication: Metastases to liver
  19. LEUPROLIDE ACETATE [Concomitant]
     Active Substance: LEUPROLIDE ACETATE
     Indication: Disease progression

REACTIONS (12)
  - Death [Fatal]
  - Central nervous system lesion [Fatal]
  - Epilepsy [Fatal]
  - General physical health deterioration [Fatal]
  - Headache [Fatal]
  - Cardiac dysfunction [Fatal]
  - Asthenia [Fatal]
  - Anaemia [Fatal]
  - Ejection fraction decreased [Fatal]
  - Therapy partial responder [Fatal]
  - Off label use [Fatal]
  - Intentional product use issue [Unknown]

NARRATIVE: CASE EVENT DATE: 20191201
